FAERS Safety Report 11881793 (Version 1)
Quarter: 2015Q4

REPORT INFORMATION
  Report Type: Spontaneous
  Country: RO (occurrence: RO)
  Receive Date: 20151231
  Receipt Date: 20151231
  Transmission Date: 20160305
  Serious: Yes (Other)
  Sender: FDA-Public Use
  Company Number: RO-SUN PHARMACEUTICAL INDUSTRIES LTD-2015RR-108783

PATIENT

DRUGS (2)
  1. CIPROFLOXACIN. [Suspect]
     Active Substance: CIPROFLOXACIN
     Indication: PARASPINAL ABSCESS
     Route: 042
  2. CEFTRIAXONE. [Suspect]
     Active Substance: CEFTRIAXONE
     Indication: PARASPINAL ABSCESS
     Route: 042

REACTIONS (3)
  - Hydrocephalus [Recovered/Resolved]
  - Drug ineffective [Recovered/Resolved]
  - Extradural abscess [Recovered/Resolved]
